FAERS Safety Report 13073057 (Version 1)
Quarter: 2016Q4

REPORT INFORMATION
  Report Type: Spontaneous
  Country: US (occurrence: US)
  Receive Date: 20161229
  Receipt Date: 20161229
  Transmission Date: 20170207
  Serious: Yes (Hospitalization)
  Sender: FDA-Public Use
  Company Number: US-IMPAX LABORATORIES, INC-2016-IPXL-02354

PATIENT
  Age: 89 Year
  Sex: Female

DRUGS (1)
  1. RYTARY [Suspect]
     Active Substance: CARBIDOPA\LEVODOPA
     Indication: PRODUCT USED FOR UNKNOWN INDICATION
     Dosage: 36.25/145 MG 3 CAPSULES 3 TIMES A DAY
     Route: 048
     Dates: start: 20151224

REACTIONS (4)
  - Confusional state [Unknown]
  - Renal impairment [Unknown]
  - Urinary tract infection [Unknown]
  - Dehydration [Unknown]
